FAERS Safety Report 10352400 (Version 1)
Quarter: 2014Q3

REPORT INFORMATION
  Report Type: Spontaneous
  Country: US (occurrence: US)
  Receive Date: 20140730
  Receipt Date: 20140730
  Transmission Date: 20150326
  Serious: No
  Sender: FDA-Public Use
  Company Number: US-ABBVIE-13P-163-1168490-00

PATIENT
  Sex: Female

DRUGS (2)
  1. SYNTHROID [Suspect]
     Active Substance: LEVOTHYROXINE SODIUM
     Indication: HYPOTHYROIDISM
  2. SYNTHROID [Suspect]
     Active Substance: LEVOTHYROXINE SODIUM

REACTIONS (7)
  - Eyelid oedema [Unknown]
  - Malaise [Unknown]
  - Abdominal distension [Unknown]
  - Tremor [Unknown]
  - Arthralgia [Unknown]
  - Pruritus generalised [Unknown]
  - Tinnitus [Unknown]
